FAERS Safety Report 6772669-8 (Version None)
Quarter: 2010Q2

REPORT INFORMATION
  Report Type: 
  Country: None (occurrence: None)
  Receive Date: 20100616
  Receipt Date: 20090528
  Transmission Date: 20101027
  Serious: No
  Sender: FDA-Public Use
  Company Number: US-ASTRAZENECA-2009UW12556

PATIENT
  Age: 31 Year
  Sex: Female
  Weight: 56.7 kg

DRUGS (4)
  1. PULMICORT FLEXHALER [Suspect]
     Indication: ASTHMA
     Route: 055
  2. BIRTH CONTROL PILLS [Concomitant]
  3. RESCUE INHALER [Concomitant]
  4. ALLERGY SHOTS [Concomitant]

REACTIONS (4)
  - ASTHMA [None]
  - DRUG INEFFECTIVE [None]
  - PRODUCT QUALITY ISSUE [None]
  - TONGUE DISCOLOURATION [None]
